FAERS Safety Report 21874304 (Version 1)
Quarter: 2023Q1

REPORT INFORMATION
  Report Type: Spontaneous
  Country: PL (occurrence: PL)
  Receive Date: 20230117
  Receipt Date: 20230117
  Transmission Date: 20230418
  Serious: Yes (Other)
  Sender: FDA-Public Use
  Company Number: PL-AMGEN-POLSP2023005121

PATIENT
  Age: 49 Year
  Sex: Female

DRUGS (6)
  1. PANITUMUMAB [Suspect]
     Active Substance: PANITUMUMAB
     Indication: Colorectal cancer metastatic
     Dosage: 6 MILLIGRAM/KILOGRAM OF BODY WEIGHT 1 DAY, Q2WK
     Route: 065
     Dates: start: 20220309
  2. OXALIPLATIN [Suspect]
     Active Substance: OXALIPLATIN
     Indication: Colorectal cancer metastatic
     Dosage: 85 MILLIGRAM/SQ. METER (DAY 1)
     Route: 040
     Dates: start: 20220309
  3. OXALIPLATIN [Suspect]
     Active Substance: OXALIPLATIN
     Dosage: UNK (20% REDUCTION)
     Route: 040
     Dates: end: 20220818
  4. LEVOLEUCOVORIN DISODIUM [Suspect]
     Active Substance: LEVOLEUCOVORIN DISODIUM
     Indication: Colorectal cancer metastatic
     Dosage: 100 MILLIGRAM/SQ. METER, 2 HOUR INFUSION DAY 1-2
     Route: 040
     Dates: start: 20220309, end: 20220818
  5. FLUOROURACIL [Suspect]
     Active Substance: FLUOROURACIL
     Indication: Colorectal cancer metastatic
     Dosage: 400 MILLIGRAM/SQ. METER (BOLUS DAY 1 - 2)
     Route: 040
     Dates: start: 20220309, end: 20220818
  6. FLUOROURACIL [Suspect]
     Active Substance: FLUOROURACIL
     Dosage: 600 MILLIGRAM/SQ. METER (22 HOUR INFUSION DAY 1 - 2)
     Route: 040
     Dates: start: 20220309, end: 20220818

REACTIONS (5)
  - Thrombocytopenia [Unknown]
  - Neutropenia [Unknown]
  - Polyneuropathy [Unknown]
  - Cachexia [Unknown]
  - Rash pustular [Unknown]

NARRATIVE: CASE EVENT DATE: 20220101
